FAERS Safety Report 15675935 (Version 2)
Quarter: 2019Q1

REPORT INFORMATION
  Report Type: Spontaneous
  Country: DE (occurrence: DE)
  Receive Date: 20181130
  Receipt Date: 20190205
  Transmission Date: 20190417
  Serious: Yes (Other)
  Sender: FDA-Public Use
  Company Number: DE-009507513-1811DEU011437

PATIENT
  Sex: Female

DRUGS (3)
  1. FLUOXETIN 40 [Concomitant]
     Indication: DEPRESSION
     Dosage: ONCE DAILY
     Dates: start: 2014
  2. PANTOPRAZOLE [Suspect]
     Active Substance: PANTOPRAZOLE
  3. ZEPATIER [Suspect]
     Active Substance: ELBASVIR\GRAZOPREVIR
     Indication: CHRONIC HEPATITIS C
     Dosage: 50/100, ONCE DAILY
     Route: 048
     Dates: start: 20180204, end: 20180430

REACTIONS (2)
  - Genotype drug resistance test positive [Recovered/Resolved]
  - Hepatitis C [Recovered/Resolved]

NARRATIVE: CASE EVENT DATE: 2018
